FAERS Safety Report 9919742 (Version 2)
Quarter: 2014Q4

REPORT INFORMATION
  Report Type: Spontaneous
  Country: US (occurrence: US)
  Receive Date: 20140224
  Receipt Date: 20141009
  Transmission Date: 20150529
  Serious: Yes (Other)
  Sender: FDA-Public Use
  Company Number: US-GLAXOSMITHKLINE-A1028589A

PATIENT
  Age: 52 Year
  Sex: Female

DRUGS (1)
  1. LAMICTAL [Suspect]
     Active Substance: LAMOTRIGINE
     Indication: TEMPORAL LOBE EPILEPSY
     Dosage: 225 MG AT UNKNOWN DOSING (200 MG TABLET PLUS 25 MG TABLET)
     Route: 065
     Dates: start: 20081208

REACTIONS (6)
  - Brain injury [Unknown]
  - Seizure [Unknown]
  - Postictal state [Recovering/Resolving]
  - Therapeutic response decreased [Unknown]
  - Tongue injury [Recovering/Resolving]
  - Nausea [Recovering/Resolving]

NARRATIVE: CASE EVENT DATE: 201305
